FAERS Safety Report 8775810 (Version 6)
Quarter: 2022Q3

REPORT INFORMATION
  Report Type: Spontaneous
  Country: GB (occurrence: GB)
  Receive Date: 20120910
  Receipt Date: 20220805
  Transmission Date: 20221026
  Serious: Yes (Other)
  Sender: FDA-Public Use
  Company Number: GB-PERRIGO-12GB007553

PATIENT
  Age: 15 Year
  Sex: Female

DRUGS (6)
  1. CETIRIZINE HYDROCHLORIDE [Interacting]
     Active Substance: CETIRIZINE HYDROCHLORIDE
     Indication: Seasonal allergy
     Dosage: UNK, ONCE A DAY (OCCASIONAL CETIRIZINE)
     Route: 048
  2. LAMICTAL [Interacting]
     Active Substance: LAMOTRIGINE
     Indication: Bipolar disorder
     Dosage: 50 MG, QD
     Route: 048
  3. LAMICTAL [Interacting]
     Active Substance: LAMOTRIGINE
     Dosage: 50 MILLIGRAM, 3 TIMES A DAY
     Route: 048
  4. NEXPLANON [Interacting]
     Active Substance: ETONOGESTREL
     Indication: Contraception
     Dosage: 68 MG, UNK
     Route: 059
  5. ABILIFY [Interacting]
     Active Substance: ARIPIPRAZOLE
     Indication: Bipolar disorder
     Dosage: UNK
     Route: 065
  6. ARIPIPRAZOLE [Suspect]
     Active Substance: ARIPIPRAZOLE
     Indication: Bipolar disorder
     Route: 065

REACTIONS (10)
  - Intermenstrual bleeding [Unknown]
  - Abortion spontaneous [Unknown]
  - Pregnancy with contraceptive device [Recovered/Resolved]
  - Unintended pregnancy [Recovered/Resolved]
  - Pregnancy with implant contraceptive [Recovered/Resolved]
  - Pregnancy on contraceptive [Recovered/Resolved]
  - Drug interaction [Unknown]
  - Maternal exposure during pregnancy [Recovered/Resolved]
  - Pregnancy [Recovered/Resolved]
  - Exposure during pregnancy [Unknown]
